FAERS Safety Report 23961714 (Version 1)
Quarter: 2024Q2

REPORT INFORMATION
  Report Type: Spontaneous
  Country: JP (occurrence: JP)
  Receive Date: 20240611
  Receipt Date: 20240611
  Transmission Date: 20240715
  Serious: Yes (Life-Threatening, Hospitalization, Other)
  Sender: FDA-Public Use
  Company Number: JP-PFIZER INC-202400190531

PATIENT
  Age: 54 Year
  Sex: Female

DRUGS (13)
  1. METHYLPREDNISOLONE SODIUM SUCCINATE [Suspect]
     Active Substance: METHYLPREDNISOLONE SODIUM SUCCINATE
     Indication: Skin disorder
     Dosage: 1000 MG
     Route: 042
  2. METHYLPREDNISOLONE SODIUM SUCCINATE [Suspect]
     Active Substance: METHYLPREDNISOLONE SODIUM SUCCINATE
     Indication: Hypersensitivity pneumonitis
  3. BETAMETHASONE [Concomitant]
     Active Substance: BETAMETHASONE\BETAMETHASONE DIPROPIONATE
     Indication: Skin disorder
     Dosage: 1.5 MG
  4. BETAMETHASONE [Concomitant]
     Active Substance: BETAMETHASONE\BETAMETHASONE DIPROPIONATE
     Dosage: 1.0 UNK
  5. URSODIOL [Concomitant]
     Active Substance: URSODIOL
     Indication: Hepatic function abnormal
     Dosage: 200 MG, DAILY
  6. URSODIOL [Concomitant]
     Active Substance: URSODIOL
     Dosage: 600 UNK
  7. PREDNISOLONE [Concomitant]
     Active Substance: PREDNISOLONE
     Indication: Liver injury
     Dosage: 20 MG, DAILY, ON DAY 75
     Route: 048
  8. PREDNISOLONE [Concomitant]
     Active Substance: PREDNISOLONE
     Dosage: 15 MG, DAILY, ON DAY 82
     Route: 048
  9. PREDNISOLONE [Concomitant]
     Active Substance: PREDNISOLONE
     Dosage: 60 MG,BY DAY 119
     Route: 048
  10. PREDNISOLONE [Concomitant]
     Active Substance: PREDNISOLONE
     Dosage: 60 MG,ON DAY 159
     Route: 048
  11. PREDNISOLONE [Concomitant]
     Active Substance: PREDNISOLONE
     Dosage: 7.5 MG,BY DAY 272
     Route: 048
  12. PREDNISOLONE [Concomitant]
     Active Substance: PREDNISOLONE
     Dosage: 5 MG,ON DAY 304
     Route: 048
  13. PREDNISOLONE [Concomitant]
     Active Substance: PREDNISOLONE
     Dosage: 30 MG
     Route: 048

REACTIONS (1)
  - Drug ineffective [Recovered/Resolved]
